FAERS Safety Report 15813607 (Version 1)
Quarter: 2019Q1

REPORT INFORMATION
  Report Type: Spontaneous
  Country: US (occurrence: US)
  Receive Date: 20190111
  Receipt Date: 20190111
  Transmission Date: 20190417
  Serious: Yes (Hospitalization)
  Sender: FDA-Public Use
  Company Number: US-MYLANLABS-2019M1000236

PATIENT

DRUGS (6)
  1. BISOPROLOL FUMARATE TABLETS, USP [Suspect]
     Active Substance: BISOPROLOL FUMARATE
     Indication: TACHYCARDIA
     Dosage: 5 MILLIGRAM, QD
     Route: 048
     Dates: start: 20181222
  2. DIAZEPAM. [Concomitant]
     Active Substance: DIAZEPAM
     Dosage: 6 MILLIGRAM, QD (6MG BEFORE BED)
  3. PAROXETINE. [Concomitant]
     Active Substance: PAROXETINE
     Dosage: UNK UNK, BID (I TAKE THIS TWICE DAILY)
  4. LORAZEPAM. [Concomitant]
     Active Substance: LORAZEPAM
     Dosage: UNK UNK, TID (I TAKE THIS THREE TIMES DAILY)
  5. BISOPROLOL FUMARATE TABLETS, USP [Suspect]
     Active Substance: BISOPROLOL FUMARATE
     Indication: HYPERTENSION
  6. QUETIAPINE. [Concomitant]
     Active Substance: QUETIAPINE
     Dosage: 50 MILLIGRAM, QD (I TAKE 50MG AT NIGHT)

REACTIONS (5)
  - Dizziness [Not Recovered/Not Resolved]
  - Heart rate irregular [Not Recovered/Not Resolved]
  - Drug effect variable [Not Recovered/Not Resolved]
  - Tachycardia [Recovering/Resolving]
  - Product administration error [Unknown]

NARRATIVE: CASE EVENT DATE: 20181222
